FAERS Safety Report 18263145 (Version 1)
Quarter: 2020Q3

REPORT INFORMATION
  Report Type: Other
  Country: AU (occurrence: AU)
  Receive Date: 20200914
  Receipt Date: 20200914
  Transmission Date: 20201103
  Serious: Yes (Other)
  Sender: FDA-Public Use
  Company Number: AU-ROCHE-2395551

PATIENT
  Age: 59 Year
  Sex: Female

DRUGS (1)
  1. OCREVUS [Suspect]
     Active Substance: OCRELIZUMAB
     Indication: RELAPSING-REMITTING MULTIPLE SCLEROSIS
     Dosage: THEN 600 MG ONCE IN SIX MONTH
     Route: 041
     Dates: start: 20190301

REACTIONS (5)
  - Impaired healing [Recovered/Resolved]
  - Skin infection [Not Recovered/Not Resolved]
  - Enteritis infectious [Recovering/Resolving]
  - Ear lobe infection [Recovered/Resolved]
  - Fatigue [Not Recovered/Not Resolved]

NARRATIVE: CASE EVENT DATE: 20190821
